FAERS Safety Report 14564780 (Version 1)
Quarter: 2018Q1

REPORT INFORMATION
  Report Type: Spontaneous
  Country: US (occurrence: US)
  Receive Date: 20180222
  Receipt Date: 20180222
  Transmission Date: 20180509
  Serious: No
  Sender: FDA-Public Use
  Company Number: US-HETERO-HET2018US00100

PATIENT
  Age: 91 Year
  Sex: Female
  Weight: 72.56 kg

DRUGS (1)
  1. LEVOFLOXACIN. [Suspect]
     Active Substance: LEVOFLOXACIN
     Indication: LUNG INFECTION
     Dosage: 750 MG, QD
     Route: 065
     Dates: start: 20180125, end: 20180127

REACTIONS (4)
  - Amnesia [Recovering/Resolving]
  - Tremor [Recovering/Resolving]
  - Drug intolerance [Recovering/Resolving]
  - Confusional state [Recovering/Resolving]

NARRATIVE: CASE EVENT DATE: 20180125
